FAERS Safety Report 5486103-1 (Version None)
Quarter: 2007Q4

REPORT INFORMATION
  Report Type: 
  Country: None (occurrence: None)
  Receive Date: 20071015
  Receipt Date: 20071003
  Transmission Date: 20080405
  Serious: Yes (Other)
  Sender: FDA-Public Use
  Company Number: JP-PFIZER INC-2007083022

PATIENT
  Age: 56 Year
  Sex: Male

DRUGS (2)
  1. ZYVOX [Suspect]
     Dosage: DAILY DOSE:600MG
     Route: 042
  2. STEROID ANTIBACTERIALS [Concomitant]

REACTIONS (1)
  - INTERSTITIAL LUNG DISEASE [None]
